FAERS Safety Report 9106342 (Version 1)
Quarter: 2013Q1

REPORT INFORMATION
  Report Type: Spontaneous
  Country: FR (occurrence: FR)
  Receive Date: 20130221
  Receipt Date: 20130221
  Transmission Date: 20140127
  Serious: Yes (Hospitalization)
  Sender: FDA-Public Use
  Company Number: FR-PFIZER INC-2013060924

PATIENT
  Age: 73 Year
  Sex: Female

DRUGS (4)
  1. DALACINE [Suspect]
     Dosage: UNK
     Route: 042
     Dates: start: 20120514, end: 20120524
  2. TARGOCID [Suspect]
     Dosage: UNK
     Route: 042
     Dates: start: 20120514, end: 20120524
  3. KEPPRA [Concomitant]
     Dosage: 500 MG, 2X/DAY, IN THE MORNING AND IN THE EVENING
     Route: 048
  4. ATARAX [Concomitant]
     Dosage: 25 MG, 1X/DAY IN THE EVENING
     Route: 048

REACTIONS (2)
  - Drug eruption [Recovered/Resolved]
  - Skin test negative [Unknown]
